FAERS Safety Report 12416978 (Version 1)
Quarter: 2016Q2

REPORT INFORMATION
  Report Type: Report from Study
  Country: HU (occurrence: HU)
  Receive Date: 20160530
  Receipt Date: 20160530
  Transmission Date: 20160815
  Serious: Yes (Other)
  Sender: FDA-Public Use
  Company Number: HU-JNJFOC-20130809742

PATIENT
  Age: 7 Decade
  Sex: Male

DRUGS (1)
  1. STELARA [Suspect]
     Active Substance: USTEKINUMAB
     Indication: PSORIASIS
     Route: 058
     Dates: start: 20110830

REACTIONS (8)
  - Arthralgia [Unknown]
  - Lower respiratory tract infection [Unknown]
  - Oropharyngeal pain [Recovered/Resolved]
  - Myalgia [Unknown]
  - Nasopharyngitis [Unknown]
  - Cough [Unknown]
  - Nasal congestion [Unknown]
  - Rhinorrhoea [Recovered/Resolved]

NARRATIVE: CASE EVENT DATE: 2013
